FAERS Safety Report 8212290-8 (Version None)
Quarter: 2012Q1

REPORT INFORMATION
  Report Type: 
  Country: None (occurrence: None)
  Receive Date: 20120315
  Receipt Date: 20111104
  Transmission Date: 20120608
  Serious: Yes (Other)
  Sender: FDA-Public Use
  Company Number: BR-ROCHE-1047707

PATIENT
  Sex: Female

DRUGS (4)
  1. FORMOTEROL FUMARATE [Suspect]
     Indication: ASTHMA
  2. XOLAIR [Suspect]
     Indication: ASTHMA
     Dosage: 150 MG IN EACH ARM, VIAL
     Dates: start: 20110921
  3. BUDESONIDE [Suspect]
     Indication: ASTHMA
     Dosage: 12/400 UG TWICE A DAY
  4. ACETAMINOPHEN [Concomitant]

REACTIONS (2)
  - ASTHMATIC CRISIS [None]
  - NASOPHARYNGITIS [None]
